FAERS Safety Report 19899633 (Version 1)
Quarter: 2021Q3

REPORT INFORMATION
  Report Type: Spontaneous
  Country: DE (occurrence: DE)
  Receive Date: 20210929
  Receipt Date: 20210929
  Transmission Date: 20211014
  Serious: Yes (Hospitalization)
  Sender: FDA-Public Use
  Company Number: DE-MYLANLABS-2021M1066562

PATIENT
  Age: 87 Year
  Sex: Female
  Weight: 44.5 kg

DRUGS (2)
  1. ACETYLSALICYLSAEURE [Suspect]
     Active Substance: ASPIRIN
     Indication: PRODUCT USED FOR UNKNOWN INDICATION
     Dosage: 100 MILLIGRAM, QD (100 MG, 1?0?0?0, TABLETTEN)
     Route: 048
  2. IBUPROFEN. [Suspect]
     Active Substance: IBUPROFEN
     Indication: PRODUCT USED FOR UNKNOWN INDICATION
     Dosage: 400 MILLIGRAM (400 MG, BEI BEDARF, TABLETTEN)
     Route: 048

REACTIONS (3)
  - Haematemesis [Unknown]
  - Diarrhoea [Unknown]
  - Nausea [Unknown]
